FAERS Safety Report 7752321-2 (Version None)
Quarter: 2011Q3

REPORT INFORMATION
  Report Type: 
  Country: None (occurrence: None)
  Receive Date: 20110915
  Receipt Date: 20110901
  Transmission Date: 20111222
  Serious: Yes (Death, Life-Threatening, Hospitalization, Other)
  Sender: FDA-Public Use
  Company Number: DE-ELI_LILLY_AND_COMPANY-DE201109000241

PATIENT
  Age: 31 Year
  Sex: Male

DRUGS (5)
  1. FLUOXETINE [Suspect]
     Dosage: 40 MG, UNK
     Route: 048
  2. NITOMAN [Concomitant]
     Dosage: UNK
     Dates: start: 20101101
  3. FLUOXETINE [Suspect]
     Dosage: 180 MG, QD
     Route: 048
     Dates: start: 20101117
  4. DIAZEPAM [Concomitant]
     Dosage: UNK
     Dates: start: 20101101
  5. NEUROCIL [Concomitant]
     Dosage: UNK
     Dates: start: 20101101

REACTIONS (6)
  - PYREXIA [None]
  - COMA [None]
  - OVERDOSE [None]
  - VOMITING [None]
  - PNEUMONIA ASPIRATION [None]
  - HEPATITIS [None]
